FAERS Safety Report 7073311-1 (Version None)
Quarter: 2010Q4

REPORT INFORMATION
  Report Type: 
  Country: None (occurrence: None)
  Receive Date: 20101029
  Receipt Date: 20100720
  Transmission Date: 20110411
  Serious: No
  Sender: FDA-Public Use
  Company Number: A0861694A

PATIENT
  Age: 78 Year
  Sex: Male
  Weight: 105 kg

DRUGS (10)
  1. ADVAIR DISKUS 100/50 [Suspect]
     Indication: CHRONIC OBSTRUCTIVE PULMONARY DISEASE
     Dosage: 1PUFF TWICE PER DAY
     Route: 055
     Dates: start: 20040614
  2. SPIRIVA [Concomitant]
     Dosage: 1PUFF PER DAY
     Route: 055
  3. COREG [Concomitant]
     Dosage: 1TAB PER DAY
     Route: 048
  4. TORSEMIDE [Concomitant]
     Dosage: 1TAB PER DAY
     Route: 048
  5. UROXATRAL [Concomitant]
     Dosage: 1TAB PER DAY
     Route: 048
  6. SOTALOL [Concomitant]
     Dosage: 1TAB TWICE PER DAY
     Route: 048
  7. FINASTERIDE [Concomitant]
     Dosage: 1TAB PER DAY
     Route: 048
  8. LIPITOR [Concomitant]
     Dosage: 1TAB PER DAY
     Route: 048
  9. SPIRONOLACTONE [Concomitant]
     Route: 048
  10. KLOR-CON [Concomitant]
     Dosage: 2TAB PER DAY
     Route: 048

REACTIONS (2)
  - MALAISE [None]
  - PRODUCT QUALITY ISSUE [None]
